FAERS Safety Report 5639327-4 (Version None)
Quarter: 2008Q1

REPORT INFORMATION
  Report Type: 
  Country: None (occurrence: None)
  Receive Date: 20080131
  Receipt Date: 20071202
  Transmission Date: 20080703
  Serious: Yes (Other)
  Sender: FDA-Public Use
  Company Number: 163-21880-07120100

PATIENT
  Age: 68 Year
  Sex: Male

DRUGS (7)
  1. REVLIMID [Suspect]
     Indication: MULTIPLE MYELOMA
     Dosage: 25 MG, 1 IN 1 D, ORAL
     Route: 048
     Dates: start: 20071119
  2. COUMADIN [Concomitant]
  3. LANOXIN [Concomitant]
  4. BENADRYL [Concomitant]
  5. FISH OIL (FISH OIL) [Concomitant]
  6. WELCHOR (COLESEVELAM HYDROCHLORIDE) [Concomitant]
  7. DEXAMETHASONE TAB [Concomitant]

REACTIONS (3)
  - ANURIA [None]
  - OEDEMA PERIPHERAL [None]
  - RENAL FAILURE [None]
